FAERS Safety Report 15650804 (Version 1)
Quarter: 2018Q4

REPORT INFORMATION
  Report Type: Spontaneous
  Country: US (occurrence: US)
  Receive Date: 20181123
  Receipt Date: 20181123
  Transmission Date: 20190205
  Serious: No
  Sender: FDA-Public Use
  Company Number: US-TEVA-2018-US-978058

PATIENT
  Sex: Male

DRUGS (1)
  1. TADAFIL TEVA [Suspect]
     Active Substance: TADALAFIL
     Indication: PROSTATOMEGALY
     Dates: start: 20181107

REACTIONS (2)
  - Drug ineffective [Unknown]
  - Product substitution issue [Unknown]
